FAERS Safety Report 13137601 (Version 1)
Quarter: 2017Q1

REPORT INFORMATION
  Report Type: Spontaneous
  Country: US (occurrence: US)
  Receive Date: 20170123
  Receipt Date: 20170123
  Transmission Date: 20170428
  Serious: No
  Sender: FDA-Public Use
  Company Number: US-UNITED THERAPEUTICS-UNT-2016-008763

PATIENT
  Sex: Male
  Weight: 86.17 kg

DRUGS (1)
  1. REMODULIN [Suspect]
     Active Substance: TREPROSTINIL
     Indication: PRODUCT USED FOR UNKNOWN INDICATION
     Dosage: 0.24 ?G/KG/MIN
     Route: 041
     Dates: start: 2008

REACTIONS (1)
  - Systemic infection [Unknown]

NARRATIVE: CASE EVENT DATE: 201605
